FAERS Safety Report 4717609-8 (Version None)
Quarter: 2005Q3

REPORT INFORMATION
  Report Type: 
  Country: None (occurrence: None)
  Receive Date: 20050712
  Receipt Date: 20050314
  Transmission Date: 20060218
  Serious: No
  Sender: FDA-Public Use
  Company Number: 2005S1000056

PATIENT
  Sex: 0

DRUGS (1)
  1. CUBICIN [Suspect]
     Dates: end: 20050101

REACTIONS (1)
  - RASH [None]
